FAERS Safety Report 5863003-6 (Version None)
Quarter: 2008Q3

REPORT INFORMATION
  Report Type: 
  Country: None (occurrence: None)
  Receive Date: 20080818
  Receipt Date: 20080423
  Transmission Date: 20090109
  Serious: No
  Sender: FDA-Public Use
  Company Number: WAES 0804USA05122

PATIENT
  Age: 56 Year
  Sex: Male

DRUGS (6)
  1. JANUVIA [Suspect]
     Indication: DIABETES MELLITUS
     Dosage: 100 MG/DAILY/PO
     Route: 048
     Dates: start: 20080312
  2. ACCUPRIL [Concomitant]
  3. BYETTA [Concomitant]
  4. PRILOSEC [Concomitant]
  5. METFORMIN HCL [Concomitant]
  6. THYROID TAB [Concomitant]

REACTIONS (1)
  - DIARRHOEA [None]
